FAERS Safety Report 23687963 (Version 1)
Quarter: 2024Q1

REPORT INFORMATION
  Report Type: Spontaneous
  Country: US (occurrence: None)
  Receive Date: 20240329
  Receipt Date: 20240329
  Transmission Date: 20240410
  Serious: No
  Sender: FDA-Public Use
  Company Number: None

PATIENT
  Sex: Male

DRUGS (1)
  1. HUMIRA [Suspect]
     Active Substance: ADALIMUMAB
     Indication: Drug therapy
     Dosage: FREQUENCY : EVERY OTHER WEEK;?
     Route: 058
     Dates: start: 20191101

REACTIONS (8)
  - Loss of personal independence in daily activities [None]
  - Pain [None]
  - Infection [None]
  - Diarrhoea [None]
  - Fatigue [None]
  - Arthralgia [None]
  - Surgery [None]
  - Intentional dose omission [None]
